FAERS Safety Report 9390430 (Version 2)
Quarter: 2013Q3

REPORT INFORMATION
  Report Type: Spontaneous
  Country: US (occurrence: US)
  Receive Date: 20130709
  Receipt Date: 20130802
  Transmission Date: 20140515
  Serious: No
  Sender: FDA-Public Use
  Company Number: US-B.I. PHARMACEUTICALS,INC./RIDGEFIELD-2013-BI-19228BP

PATIENT
  Age: 86 Year
  Sex: Male
  Weight: 63.5 kg

DRUGS (10)
  1. TRADJENTA [Suspect]
     Indication: TYPE 2 DIABETES MELLITUS
     Dosage: 5 MG
     Route: 048
     Dates: start: 20130505, end: 20130626
  2. GLIPIZIDE ER [Concomitant]
     Indication: DIABETES MELLITUS
     Dosage: 20 MG
     Dates: start: 20041020
  3. LEVOTHYROXINE [Concomitant]
     Indication: HYPOTHYROIDISM
     Dosage: 0.05 MG
     Dates: start: 20110225
  4. VYTORIN [Concomitant]
     Indication: HYPERLIPIDAEMIA
     Dosage: 10/20
     Dates: start: 20060420
  5. LOSARTAN [Concomitant]
     Indication: HYPERTENSION
     Dosage: 100 MG
     Dates: start: 20050523
  6. TORSEMIDE [Concomitant]
     Indication: HYPERTENSION
     Dosage: 10 MG
     Route: 054
     Dates: start: 20101014
  7. DOXAZOSIN [Concomitant]
     Dosage: 1 MG
  8. LOPRESSOR [Concomitant]
     Dosage: 50 MG
  9. VITAMIN B [Concomitant]
     Dosage: 1000 MCG
  10. AMLODIPINE [Concomitant]
     Dosage: 5 MG

REACTIONS (1)
  - Oedema peripheral [Recovered/Resolved]
